FAERS Safety Report 10643436 (Version 1)
Quarter: 2014Q4

REPORT INFORMATION
  Report Type: Spontaneous
  Country: FR (occurrence: FR)
  Receive Date: 20141210
  Receipt Date: 20141210
  Transmission Date: 20150529
  Serious: Yes (Death)
  Sender: FDA-Public Use
  Company Number: FR-SA-2014SA169240

PATIENT
  Age: 54 Year
  Sex: Male

DRUGS (11)
  1. ATORVASTATIN [Suspect]
     Active Substance: ATORVASTATIN
     Route: 048
     Dates: end: 20141110
  2. CORDARONE [Suspect]
     Active Substance: AMIODARONE HYDROCHLORIDE
     Route: 048
     Dates: end: 20141110
  3. NICORANDIL [Suspect]
     Active Substance: NICORANDIL
     Route: 048
     Dates: end: 20141110
  4. METFORMIN [Suspect]
     Active Substance: METFORMIN HYDROCHLORIDE
     Route: 048
     Dates: end: 20141110
  5. TEMERIT [Suspect]
     Active Substance: NEBIVOLOL
     Route: 048
     Dates: end: 20141110
  6. AMAREL [Suspect]
     Active Substance: GLIMEPIRIDE
     Route: 048
     Dates: end: 20141110
  7. DUOPLAVIN [Suspect]
     Active Substance: ASPIRIN\CLOPIDOGREL
     Dosage: DOSE:1 UNIT(S)
     Route: 048
     Dates: end: 20141110
  8. APROVEL [Suspect]
     Active Substance: IRBESARTAN
     Route: 048
     Dates: end: 20141110
  9. PRADAXA [Suspect]
     Active Substance: DABIGATRAN ETEXILATE MESYLATE
     Route: 048
     Dates: end: 20141110
  10. JANUVIA [Suspect]
     Active Substance: SITAGLIPTIN PHOSPHATE
     Route: 048
     Dates: end: 20141110
  11. PANTOPRAZOLE [Suspect]
     Active Substance: PANTOPRAZOLE SODIUM
     Route: 048
     Dates: end: 20141110

REACTIONS (7)
  - Abdominal pain [Fatal]
  - Gastrointestinal disorder [Fatal]
  - Diarrhoea [Fatal]
  - Lactic acidosis [Fatal]
  - Renal failure [Fatal]
  - Vomiting [Fatal]
  - Multi-organ failure [Fatal]

NARRATIVE: CASE EVENT DATE: 20141108
